FAERS Safety Report 7354391-2 (Version None)
Quarter: 2011Q1

REPORT INFORMATION
  Report Type: 
  Country: None (occurrence: None)
  Receive Date: 20110316
  Receipt Date: 20110301
  Transmission Date: 20110831
  Serious: Yes (Disabling)
  Sender: FDA-Public Use
  Company Number: PHHY2011US16727

PATIENT
  Sex: Female

DRUGS (16)
  1. TRAZODONE HCL [Concomitant]
     Dosage: 50 MG,
     Route: 048
  2. ADDERALL XR 10 [Concomitant]
     Dosage: 20 MG,
     Dates: start: 20110228
  3. COQ10 [Concomitant]
     Dosage: 200 MG,
  4. ASCORBIC ACID [Concomitant]
  5. SOMA [Concomitant]
     Dosage: 350 MG,
     Route: 048
     Dates: start: 20100813
  6. FLECTOR [Concomitant]
     Dosage: 1.3 %,
     Route: 062
  7. IPRIFLAVONE [Concomitant]
     Dosage: 1 TABLET ONCE DAILY
     Route: 048
  8. FISH OIL [Concomitant]
     Route: 048
  9. VESICARE [Concomitant]
     Dosage: 10 MG,
     Route: 048
  10. CELEXA [Concomitant]
     Dosage: 20 MG,
     Route: 048
  11. RECLAST [Suspect]
     Indication: OSTEOPOROSIS
     Dosage: 5MG/100ML
     Route: 042
     Dates: start: 20110208
  12. ELIDEL [Concomitant]
     Dosage: 1 %,
     Dates: start: 20100209
  13. MAGNESIUM CITRATE [Concomitant]
  14. VITAMIN D [Concomitant]
     Dosage: 1000 U,
  15. TYLENOL PM [Suspect]
     Dosage: UNK
     Route: 048
  16. ISOCOR [Concomitant]

REACTIONS (10)
  - FALL [None]
  - MALAISE [None]
  - FEELING COLD [None]
  - NAUSEA [None]
  - PAIN [None]
  - FEELING HOT [None]
  - DECREASED APPETITE [None]
  - ASTHENIA [None]
  - DYSSTASIA [None]
  - DIZZINESS [None]
